FAERS Safety Report 5691918-0 (Version None)
Quarter: 2008Q2

REPORT INFORMATION
  Report Type: 
  Country: None (occurrence: None)
  Receive Date: 20080402
  Receipt Date: 20080321
  Transmission Date: 20081010
  Serious: Yes (Death, Hospitalization)
  Sender: FDA-Public Use
  Company Number: JP-AMGEN-US271722

PATIENT
  Sex: Male

DRUGS (4)
  1. ENBREL [Suspect]
     Indication: RHEUMATOID ARTHRITIS
     Dosage: 25 MG, FREQUENCY UNSPECIFIED
     Route: 058
     Dates: start: 20070601, end: 20080201
  2. FOSAMAX [Concomitant]
     Dosage: UNSPECIFIED
     Route: 048
  3. TAKEPRON [Concomitant]
     Dosage: UNSPECIFIED
     Route: 048
  4. PREDNISOLONE [Concomitant]
     Dosage: UNSPECIFIED
     Route: 048

REACTIONS (3)
  - DEATH [None]
  - DRUG INEFFECTIVE [None]
  - PNEUMOCYSTIS JIROVECI PNEUMONIA [None]
